FAERS Safety Report 4782760-3 (Version None)
Quarter: 2005Q3

REPORT INFORMATION
  Report Type: 
  Country: None (occurrence: None)
  Receive Date: 20050927
  Receipt Date: 20050920
  Transmission Date: 20060218
  Serious: Yes (Hospitalization)
  Sender: FDA-Public Use
  Company Number: 200510544BFR

PATIENT
  Age: 45 Year
  Sex: Female

DRUGS (8)
  1. ACARBOSE [Suspect]
     Dosage: ORAL
     Route: 048
     Dates: start: 20050115
  2. ISOPTIN [Suspect]
     Dates: start: 20041015
  3. FENOFIBRATE [Suspect]
     Dates: start: 20020701
  4. HYPERIUM (RILMENIDINE) [Suspect]
     Dates: start: 20050115
  5. FUROSEMIDE [Suspect]
     Dates: start: 20050215
  6. APROVEL [Concomitant]
  7. GLUCOPHAGE [Concomitant]
  8. NOVONORM [Concomitant]

REACTIONS (4)
  - ARTHRALGIA [None]
  - BLOOD IMMUNOGLOBULIN A INCREASED [None]
  - HENOCH-SCHONLEIN PURPURA [None]
  - LEUKOCYTOCLASTIC VASCULITIS [None]
